FAERS Safety Report 14513278 (Version 1)
Quarter: 2018Q1

REPORT INFORMATION
  Report Type: Other
  Country: FR (occurrence: FR)
  Receive Date: 20180209
  Receipt Date: 20180209
  Transmission Date: 20180509
  Serious: Yes (Death)
  Sender: FDA-Public Use
  Company Number: FR-SEATTLE GENETICS-2018SGN00230

PATIENT
  Age: 26 Year
  Sex: Male
  Weight: 50 kg

DRUGS (1)
  1. ADCETRIS [Suspect]
     Active Substance: BRENTUXIMAB VEDOTIN
     Indication: HODGKIN^S DISEASE
     Dosage: UNK UNK, Q21D
     Route: 042
     Dates: start: 20161122, end: 20171123

REACTIONS (2)
  - Pneumococcal bacteraemia [Fatal]
  - Encephalitis [Fatal]

NARRATIVE: CASE EVENT DATE: 201801
